FAERS Safety Report 9664260 (Version 1)
Quarter: 2013Q4

REPORT INFORMATION
  Report Type: Spontaneous
  Country: US (occurrence: US)
  Receive Date: 20131101
  Receipt Date: 20131101
  Transmission Date: 20140711
  Serious: No
  Sender: FDA-Public Use
  Company Number: US-VERTEX PHARMACEUTICALS INC-2013-010732

PATIENT
  Sex: 0

DRUGS (1)
  1. KALYDECO [Suspect]
     Indication: CYSTIC FIBROSIS

REACTIONS (2)
  - Gastrointestinal disorder [Unknown]
  - Infective pulmonary exacerbation of cystic fibrosis [Unknown]
